FAERS Safety Report 23259249 (Version 1)
Quarter: 2023Q4

REPORT INFORMATION
  Report Type: Spontaneous
  Country: IT (occurrence: IT)
  Receive Date: 20231204
  Receipt Date: 20231204
  Transmission Date: 20240109
  Serious: Yes (Other)
  Sender: FDA-Public Use
  Company Number: None

PATIENT
  Age: 46 Year
  Sex: Female

DRUGS (1)
  1. RINVOQ [Suspect]
     Active Substance: UPADACITINIB
     Indication: Rheumatoid arthritis
     Route: 048
     Dates: start: 20210727, end: 20231126

REACTIONS (1)
  - Hypertransaminasaemia [Recovering/Resolving]

NARRATIVE: CASE EVENT DATE: 20231101
